FAERS Safety Report 4850589-3 (Version None)
Quarter: 2005Q4

REPORT INFORMATION
  Report Type: 
  Country: None (occurrence: None)
  Receive Date: 20051208
  Receipt Date: 20051208
  Transmission Date: 20060501
  Serious: Yes (Disabling, Other)
  Sender: FDA-Public Use
  Company Number: None

PATIENT
  Age: 33 Year
  Sex: Female
  Weight: 52.1637 kg

DRUGS (1)
  1. REMICADE [Suspect]
     Indication: CROHN'S DISEASE
     Dosage: 3 MG PER KILO  I THINK  EVERY 8 WEEKS IV DRIP
     Route: 042
     Dates: start: 20041101, end: 20050501

REACTIONS (4)
  - ARTHRITIS [None]
  - ARTHRITIS ENTEROPATHIC [None]
  - LUPUS-LIKE SYNDROME [None]
  - RASH [None]
